FAERS Safety Report 4628105-0 (Version None)
Quarter: 2005Q2

REPORT INFORMATION
  Report Type: 
  Country: None (occurrence: None)
  Receive Date: 20050406
  Receipt Date: 20050404
  Transmission Date: 20051028
  Serious: Yes (Life-Threatening)
  Sender: FDA-Public Use
  Company Number: US-GLAXOSMITHKLINE-A0552577A

PATIENT
  Age: 88 Year
  Sex: Female

DRUGS (11)
  1. VALTREX [Suspect]
     Dosage: 500MG THREE TIMES PER DAY
     Route: 048
     Dates: start: 20050305, end: 20050312
  2. COUMADIN [Concomitant]
     Indication: DRUG USE FOR UNKNOWN INDICATION
  3. AMIODARONE HCL [Concomitant]
     Indication: DRUG USE FOR UNKNOWN INDICATION
  4. HYDROCHLOROTHIAZIDE [Concomitant]
     Indication: DRUG USE FOR UNKNOWN INDICATION
  5. LASIX [Concomitant]
     Indication: DRUG USE FOR UNKNOWN INDICATION
  6. POTASSIUM CHLORIDE [Concomitant]
     Indication: DRUG USE FOR UNKNOWN INDICATION
  7. LEVOTHYROXINE [Concomitant]
     Indication: HYPOTHYROIDISM
  8. LIPITOR [Concomitant]
     Indication: DRUG USE FOR UNKNOWN INDICATION
  9. TYLENOL PM [Concomitant]
     Indication: DRUG USE FOR UNKNOWN INDICATION
  10. NEURONTIN [Concomitant]
     Indication: DRUG USE FOR UNKNOWN INDICATION
     Dates: start: 20050324
  11. TYLENOL (CAPLET) [Concomitant]
     Indication: DRUG USE FOR UNKNOWN INDICATION

REACTIONS (5)
  - ASTHENIA [None]
  - CEREBRAL HAEMORRHAGE [None]
  - NEURALGIA [None]
  - PROTHROMBIN TIME ABNORMAL [None]
  - TREMOR [None]
